FAERS Safety Report 21667567 (Version 1)
Quarter: 2022Q4

REPORT INFORMATION
  Report Type: Spontaneous
  Country: CN (occurrence: CN)
  Receive Date: 20221201
  Receipt Date: 20221201
  Transmission Date: 20230113
  Serious: Yes (Life-Threatening)
  Sender: FDA-Public Use
  Company Number: CN-BAYER-2022A165768

PATIENT
  Age: 51 Year
  Sex: Male
  Weight: 81 kg

DRUGS (2)
  1. ULTRAVIST [Suspect]
     Active Substance: IOPROMIDE
     Indication: Angiogram
     Dosage: 98 ML, ONCE
     Route: 042
     Dates: start: 20221118, end: 20221118
  2. ULTRAVIST [Suspect]
     Active Substance: IOPROMIDE
     Indication: Dizziness

REACTIONS (10)
  - Chest discomfort [Recovered/Resolved]
  - Head discomfort [Recovering/Resolving]
  - Pruritus [Recovered/Resolved]
  - Eye oedema [Recovering/Resolving]
  - Eye disorder [None]
  - Oropharyngeal discomfort [Recovered/Resolved]
  - Headache [Recovering/Resolving]
  - Shock [Recovering/Resolving]
  - Bradycardia [Recovering/Resolving]
  - Blood pressure decreased [Recovering/Resolving]

NARRATIVE: CASE EVENT DATE: 20221118
